FAERS Safety Report 14148535 (Version 1)
Quarter: 2017Q4

REPORT INFORMATION
  Report Type: Report from Study
  Country: NL (occurrence: NL)
  Receive Date: 20171101
  Receipt Date: 20171101
  Transmission Date: 20180321
  Serious: Yes (Death)
  Sender: FDA-Public Use
  Company Number: NL-AMGEN-NLDSL2017162880

PATIENT
  Age: 63 Year
  Sex: Female

DRUGS (2)
  1. XELODA [Concomitant]
     Active Substance: CAPECITABINE
  2. XGEVA [Suspect]
     Active Substance: DENOSUMAB
     Indication: BREAST CANCER METASTATIC
     Dosage: UNK, Q3WK
     Route: 065

REACTIONS (6)
  - Appetite disorder [Unknown]
  - Dehydration [Unknown]
  - Disease progression [Fatal]
  - Diarrhoea [Unknown]
  - Mucosal inflammation [Unknown]
  - Malaise [Unknown]
